FAERS Safety Report 8234419-8 (Version None)
Quarter: 2012Q1

REPORT INFORMATION
  Report Type: 
  Country: None (occurrence: None)
  Receive Date: 20120326
  Receipt Date: 20120321
  Transmission Date: 20120608
  Serious: Yes (Death, Life-Threatening, Hospitalization)
  Sender: FDA-Public Use
  Company Number: JP-PFIZER INC-2011211328

PATIENT
  Age: 59 Year
  Sex: Male
  Weight: 49 kg

DRUGS (18)
  1. TEMSIROLIMUS [Suspect]
     Indication: RENAL CELL CARCINOMA
     Dosage: 25 MG, WEEKLY
     Route: 042
     Dates: start: 20110706, end: 20110713
  2. CANDESARTAN CILEXETIL [Concomitant]
     Dosage: 4 MG, 1X/DAY
     Route: 048
  3. CELOOP [Concomitant]
     Dosage: 50 MG/DAY
     Route: 048
  4. ANYRUME S [Concomitant]
     Dosage: 500 MG, AS NEEDED
     Route: 048
  5. DICLOFENAC SODIUM [Concomitant]
     Dosage: 25 MG, AS NEEDED
     Route: 048
  6. TEMSIROLIMUS [Suspect]
     Dosage: 25 MG, WEEKLY
     Route: 042
     Dates: start: 20110804, end: 20110804
  7. ALLEGRA [Concomitant]
     Indication: PROPHYLAXIS
     Dosage: 60 MG, WEEKLY
     Route: 048
     Dates: start: 20110719, end: 20110719
  8. ALLEGRA [Concomitant]
     Dosage: 60 MG, WEEKLY
     Route: 048
     Dates: start: 20110804, end: 20110804
  9. ALLEGRA [Concomitant]
     Dosage: 60 MG, WEEKLY
     Route: 048
     Dates: start: 20110811, end: 20110811
  10. TEMSIROLIMUS [Suspect]
     Dosage: 25 MG, WEEKLY
     Route: 042
     Dates: start: 20110811, end: 20110811
  11. TEMSIROLIMUS [Suspect]
     Dosage: 25 MG, WEEKLY
     Route: 042
     Dates: start: 20110825, end: 20110825
  12. ALLEGRA [Concomitant]
     Dosage: 60 MG, WEEKLY
     Route: 048
     Dates: start: 20110818, end: 20110818
  13. ALLEGRA [Concomitant]
     Dosage: 60 MG, WEEKLY
     Route: 048
     Dates: start: 20110825, end: 20110825
  14. NAPROXEN [Concomitant]
     Indication: PYREXIA
     Dosage: 100 MG/DAY
     Route: 048
  15. MENATETRENONE [Concomitant]
     Dosage: 15 MG/DAY
     Route: 048
     Dates: end: 20110809
  16. TEMSIROLIMUS [Suspect]
     Dosage: 25 MG, WEEKLY
     Route: 042
     Dates: start: 20110719, end: 20110719
  17. TEMSIROLIMUS [Suspect]
     Dosage: 25 MG, WEEKLY
     Route: 042
     Dates: start: 20110818, end: 20110818
  18. FOSAMAX [Concomitant]
     Dosage: 35 MG, WEEKLY
     Route: 048
     Dates: end: 20110809

REACTIONS (7)
  - DISEASE PROGRESSION [None]
  - DEEP VEIN THROMBOSIS [None]
  - SEPSIS [None]
  - RENAL CELL CARCINOMA [None]
  - PYREXIA [None]
  - PNEUMONIA BACTERIAL [None]
  - SHUNT INFECTION [None]
